FAERS Safety Report 7397468-8 (Version None)
Quarter: 2011Q2

REPORT INFORMATION
  Report Type: 
  Country: None (occurrence: None)
  Receive Date: 20110406
  Receipt Date: 20110325
  Transmission Date: 20111010
  Serious: Yes (Other)
  Sender: FDA-Public Use
  Company Number: PHHY2011BR25363

PATIENT
  Age: 56 Year
  Sex: Female

DRUGS (1)
  1. ACLASTA [Suspect]
     Dosage: 5 MG/100ML
     Route: 042

REACTIONS (3)
  - PRURITUS [None]
  - SKIN DEPIGMENTATION [None]
  - SKIN LESION [None]
